FAERS Safety Report 20160529 (Version 3)
Quarter: 2025Q2

REPORT INFORMATION
  Report Type: Report from Study
  Country: US (occurrence: US)
  Receive Date: 20211208
  Receipt Date: 20250409
  Transmission Date: 20250717
  Serious: Yes (Hospitalization, Other)
  Sender: TAKEDA
  Company Number: US-TAKEDA-US202034330

PATIENT
  Age: 21 Year
  Sex: Male
  Weight: 54.422 kg

DRUGS (25)
  1. GAMMAGARD LIQUID [Suspect]
     Active Substance: HUMAN IMMUNOGLOBULIN G
     Indication: Primary immunodeficiency syndrome
     Dosage: 10 GRAM, 1/WEEK
  2. GAMMAGARD LIQUID [Suspect]
     Active Substance: HUMAN IMMUNOGLOBULIN G
     Indication: Hypogammaglobulinaemia
     Dosage: 2 GRAM, 1/WEEK
  3. GAMMAGARD LIQUID [Suspect]
     Active Substance: HUMAN IMMUNOGLOBULIN G
  4. ACETAMINOPHEN [Concomitant]
     Active Substance: ACETAMINOPHEN
  5. CLOBAZAM [Concomitant]
     Active Substance: CLOBAZAM
  6. METOCLOPRAMIDE HYDROCHLORIDE [Concomitant]
     Active Substance: METOCLOPRAMIDE HYDROCHLORIDE
  7. ZYRTEC [Concomitant]
     Active Substance: CETIRIZINE HYDROCHLORIDE
  8. FAMOTIDINE [Concomitant]
     Active Substance: FAMOTIDINE
  9. LORAZEPAM [Concomitant]
     Active Substance: LORAZEPAM
  10. ALBUTEROL SULFATE [Concomitant]
     Active Substance: ALBUTEROL SULFATE
  11. BACLOFEN [Concomitant]
     Active Substance: BACLOFEN
  12. DOXYCYCLINE HYCLATE [Concomitant]
     Active Substance: DOXYCYCLINE HYCLATE
  13. LAMOTRIGINE [Concomitant]
     Active Substance: LAMOTRIGINE
  14. ALBUTEROL SULFATE [Concomitant]
     Active Substance: ALBUTEROL SULFATE
  15. SALINE [Concomitant]
     Active Substance: SODIUM CHLORIDE
  16. LIDOCAINE [Concomitant]
     Active Substance: LIDOCAINE
  17. OXYBUTYNIN CHLORIDE [Concomitant]
     Active Substance: OXYBUTYNIN CHLORIDE
  18. MUPIROCIN [Concomitant]
     Active Substance: MUPIROCIN
  19. NYSTATIN [Concomitant]
     Active Substance: NYSTATIN
  20. SACCHAROMYCES CEREVISIAE [Concomitant]
     Active Substance: SACCHAROMYCES CEREVISIAE
  21. DIAZEPAM [Concomitant]
     Active Substance: DIAZEPAM
  22. DIPHENHYDRAMINE HYDROCHLORIDE [Concomitant]
     Active Substance: DIPHENHYDRAMINE HYDROCHLORIDE
  23. POLYETHYLENE GLYCOL [Concomitant]
     Active Substance: POLYETHYLENE GLYCOL
  24. KEPPRA [Concomitant]
     Active Substance: LEVETIRACETAM
  25. ONFI [Concomitant]
     Active Substance: CLOBAZAM

REACTIONS (7)
  - Pneumonia [Unknown]
  - Spinal cord injury [Unknown]
  - Scoliosis [Unknown]
  - Procedural complication [Unknown]
  - Paralysis [Unknown]
  - Seizure [Unknown]
  - Immunoglobulins increased [Unknown]

NARRATIVE: CASE EVENT DATE: 20201016
